FAERS Safety Report 5373545-8 (Version None)
Quarter: 2007Q2

REPORT INFORMATION
  Report Type: 
  Country: None (occurrence: None)
  Receive Date: 20070628
  Receipt Date: 20070622
  Transmission Date: 20071010
  Serious: Yes (Other)
  Sender: FDA-Public Use
  Company Number: B0475710A

PATIENT
  Age: 97 Year
  Sex: Female

DRUGS (7)
  1. PAXIL [Suspect]
     Indication: DRUG USE FOR UNKNOWN INDICATION
     Dosage: 10MG PER DAY
     Route: 048
     Dates: end: 20070610
  2. ADALAT [Concomitant]
     Route: 048
  3. TAKEPRON [Concomitant]
     Route: 048
  4. BIOFERMIN R [Concomitant]
     Route: 048
  5. GASMOTIN [Concomitant]
     Route: 048
  6. CARNACULIN [Concomitant]
     Route: 048
  7. EURODIN [Concomitant]
     Route: 048

REACTIONS (1)
  - HAEMORRHAGIC DIATHESIS [None]
